FAERS Safety Report 19519190 (Version 2)
Quarter: 2022Q2

REPORT INFORMATION
  Report Type: Spontaneous
  Country: US (occurrence: US)
  Receive Date: 20210712
  Receipt Date: 20220406
  Transmission Date: 20220721
  Serious: Yes (Other)
  Sender: FDA-Public Use
  Company Number: US-GLAXOSMITHKLINE-US2021GSK147014

PATIENT
  Sex: Female

DRUGS (8)
  1. ZANTAC [Suspect]
     Active Substance: RANITIDINE HYDROCHLORIDE
     Indication: Gastrooesophageal reflux disease
     Dosage: 25 MG, QD
     Route: 065
     Dates: start: 198707, end: 201908
  2. ZANTAC [Suspect]
     Active Substance: RANITIDINE HYDROCHLORIDE
     Dosage: 25 MG
     Route: 065
     Dates: start: 198707, end: 201908
  3. ZANTAC [Suspect]
     Active Substance: RANITIDINE HYDROCHLORIDE
     Indication: Gastrooesophageal reflux disease
     Dosage: 25 MG, QD
     Route: 065
     Dates: start: 198707, end: 201908
  4. ZANTAC [Suspect]
     Active Substance: RANITIDINE HYDROCHLORIDE
     Dosage: 25 MG, QD
     Route: 065
     Dates: start: 198707, end: 201908
  5. RANITIDINE [Suspect]
     Active Substance: RANITIDINE
     Indication: Gastrooesophageal reflux disease
     Dosage: 25 MG, QD
     Route: 065
     Dates: start: 198707, end: 202008
  6. RANITIDINE [Suspect]
     Active Substance: RANITIDINE
     Dosage: 25 MG, QD
     Route: 065
     Dates: start: 198707, end: 202008
  7. RANITIDINE [Suspect]
     Active Substance: RANITIDINE
     Indication: Gastrooesophageal reflux disease
     Dosage: 25 MG, QD
     Route: 065
     Dates: start: 198707, end: 202008
  8. RANITIDINE [Suspect]
     Active Substance: RANITIDINE
     Dosage: 25 MG, QD
     Route: 065
     Dates: start: 198707, end: 202008

REACTIONS (1)
  - Breast cancer [Unknown]
